FAERS Safety Report 5061102-2 (Version None)
Quarter: 2006Q3

REPORT INFORMATION
  Report Type: 
  Country: None (occurrence: None)
  Receive Date: 20060720
  Receipt Date: 20060710
  Transmission Date: 20061208
  Serious: Yes (Other)
  Sender: FDA-Public Use
  Company Number: 2006085638

PATIENT
  Age: 59 Year
  Sex: 0
  Weight: 100.9 kg

DRUGS (7)
  1. AROMASIN [Suspect]
     Indication: BREAST CANCER FEMALE
     Dosage: 25 MG (25 MG, 1 IN 1 D), ORAL
     Route: 048
     Dates: start: 20051024
  2. LIPITOR [Concomitant]
  3. LISINOPRIL [Concomitant]
  4. ZOLOFT [Concomitant]
  5. OXYCODONE HCL [Concomitant]
  6. IBUPROFEN [Concomitant]
  7. INSULIN [Concomitant]

REACTIONS (4)
  - ARTHRALGIA [None]
  - FIBULA FRACTURE [None]
  - JOINT SPRAIN [None]
  - OSTEOPENIA [None]
